FAERS Safety Report 23879855 (Version 1)
Quarter: 2024Q2

REPORT INFORMATION
  Report Type: Spontaneous
  Country: CN (occurrence: CN)
  Receive Date: 20240521
  Receipt Date: 20240521
  Transmission Date: 20240716
  Serious: Yes (Other)
  Sender: FDA-Public Use
  Company Number: None

PATIENT
  Age: 50 Year
  Sex: Female
  Weight: 72 kg

DRUGS (4)
  1. CYCLOPHOSPHAMIDE [Suspect]
     Active Substance: CYCLOPHOSPHAMIDE
     Indication: Breast cancer female
     Dosage: 1.05 G, ONE TIME IN ONE DAY, DILUTED WITH 100 ML OF SODIUM CHLORIDE, AT 11:00 HR
     Route: 041
     Dates: start: 20240508, end: 20240508
  2. SODIUM CHLORIDE [Suspect]
     Active Substance: SODIUM CHLORIDE
     Indication: Vehicle solution use
     Dosage: 100 ML, ONE TIME IN ONE DAY, USED TO DILUTE 1.05 G OF CYCLOPHOSPHAMIDE, AT 11:00 HR
     Route: 041
     Dates: start: 20240508, end: 20240508
  3. SODIUM CHLORIDE [Suspect]
     Active Substance: SODIUM CHLORIDE
     Dosage: 91 ML, ONE TIME IN ONE DAY, USED TO DILUTE 455 MG OF PACLITAXEL FOR INJECTION (ALBUMIN BOUND), AT 12
     Route: 041
     Dates: start: 20240508, end: 20240508
  4. PACLITAXEL [Suspect]
     Active Substance: PACLITAXEL
     Indication: Breast cancer female
     Dosage: 455 MG, ONE TIME IN ONE DAY, DILUTED WITH 91 ML OF SODIUM CHLORIDE, AT 12:50 HR
     Route: 041
     Dates: start: 20240508, end: 20240508

REACTIONS (4)
  - Abdominal distension [Recovering/Resolving]
  - Peripheral swelling [Recovering/Resolving]
  - Pain in extremity [Recovering/Resolving]
  - Abdominal pain lower [Recovering/Resolving]

NARRATIVE: CASE EVENT DATE: 20240509
